FAERS Safety Report 10090372 (Version 9)
Quarter: 2015Q3

REPORT INFORMATION
  Report Type: Spontaneous
  Country: US (occurrence: US)
  Receive Date: 20140421
  Receipt Date: 20150727
  Transmission Date: 20151125
  Serious: Yes (Hospitalization)
  Sender: FDA-Public Use
  Company Number: US-PFIZER INC-2014108962

PATIENT
  Age: 80 Year
  Sex: Female

DRUGS (5)
  1. PREDNISONE. [Concomitant]
     Active Substance: PREDNISONE
     Dosage: 5 MG
     Dates: start: 200903, end: 20150514
  2. XELJANZ [Suspect]
     Active Substance: TOFACITINIB CITRATE
     Indication: RHEUMATOID ARTHRITIS
     Dosage: 5 MG, 2X/DAY
     Dates: start: 201403
  3. XELJANZ [Suspect]
     Active Substance: TOFACITINIB CITRATE
     Dosage: 5 MG, 2X/DAY
     Dates: start: 201406, end: 201411
  4. XELJANZ [Suspect]
     Active Substance: TOFACITINIB CITRATE
     Dosage: 5 MG, 2X/DAY ON AND OFF
     Dates: start: 201405
  5. XELJANZ [Suspect]
     Active Substance: TOFACITINIB CITRATE
     Dosage: 5 MG, 2X/DAY

REACTIONS (15)
  - Colitis ischaemic [Recovered/Resolved]
  - Back pain [Recovered/Resolved]
  - Weight fluctuation [Unknown]
  - Chest pain [Recovered/Resolved]
  - Neuralgia [Unknown]
  - Therapeutic response unexpected [Unknown]
  - Sinus disorder [Recovered/Resolved]
  - Faeces discoloured [Recovered/Resolved]
  - Fatigue [Not Recovered/Not Resolved]
  - Nerve compression [Unknown]
  - Diarrhoea [Recovered/Resolved]
  - Nasopharyngitis [Recovered/Resolved]
  - Arthropathy [Recovered/Resolved]
  - Arthralgia [Recovered/Resolved]
  - Groin pain [Recovered/Resolved]

NARRATIVE: CASE EVENT DATE: 201404
